FAERS Safety Report 14203087 (Version 1)
Quarter: 2017Q4

REPORT INFORMATION
  Report Type: Spontaneous
  Country: GB (occurrence: GB)
  Receive Date: 20171120
  Receipt Date: 20171120
  Transmission Date: 20180321
  Serious: Yes (Other)
  Sender: FDA-Public Use
  Company Number: GB-CONCORDIA PHARMACEUTICALS INC.-GSH201603-001601

PATIENT
  Sex: Female

DRUGS (1)
  1. DIGOXIN. [Suspect]
     Active Substance: DIGOXIN

REACTIONS (6)
  - Vision blurred [Unknown]
  - Decreased interest [Unknown]
  - Fatigue [Unknown]
  - Headache [Unknown]
  - Depression [Unknown]
  - Photophobia [Unknown]
